FAERS Safety Report 5747878-7 (Version None)
Quarter: 2008Q2

REPORT INFORMATION
  Report Type: 
  Country: None (occurrence: None)
  Receive Date: 20080523
  Receipt Date: 20080519
  Transmission Date: 20081010
  Serious: Yes (Other)
  Sender: FDA-Public Use
  Company Number: US-BRISTOL-MYERS SQUIBB COMPANY-14201701

PATIENT
  Sex: Male

DRUGS (1)
  1. MUTAMYCIN [Suspect]
     Indication: BLADDER CANCER
     Route: 043
     Dates: start: 20080402

REACTIONS (1)
  - CYSTITIS [None]
